FAERS Safety Report 4300438-7 (Version None)
Quarter: 2004Q1

REPORT INFORMATION
  Report Type: 
  Country: None (occurrence: None)
  Receive Date: 20040217
  Receipt Date: 20040205
  Transmission Date: 20041129
  Serious: Yes (Death)
  Sender: FDA-Public Use
  Company Number: 04H-009-0249473-00

PATIENT
  Sex: 0

DRUGS (2)
  1. LEUCOVORIN CALCIUM [Suspect]
     Indication: COLON CANCER
     Dosage: DAY 1-5 EVERY 28 DAYS OF TREATMENT, INTRAVENOUS
     Route: 042
  2. FLUOROURACIL [Suspect]
     Indication: COLON CANCER
     Dosage: DAYS 1-5 EVERY 28 DAYS OF DAYS OF TREATMENT, INTRAVENOUS BOLUS
     Route: 040

REACTIONS (1)
  - RESPIRATORY ARREST [None]
